FAERS Safety Report 8927887 (Version 1)
Quarter: 2012Q4

REPORT INFORMATION
  Report Type: 
  Country: DE (occurrence: DE)
  Receive Date: 20121127
  Receipt Date: 20121127
  Transmission Date: 20130627
  Serious: Yes (Hospitalization)
  Sender: FDA-Public Use
  Company Number: DE-ELI_LILLY_AND_COMPANY-DE201211004682

PATIENT
  Age: 68 Year
  Sex: Female

DRUGS (3)
  1. CYMBALTA [Suspect]
     Indication: DEPRESSION
     Dosage: UNK
     Dates: start: 2010
  2. TRIMIPRAMIN [Concomitant]
  3. TAMOXIFEN [Concomitant]
     Dosage: UNK
     Dates: start: 201209

REACTIONS (1)
  - Breast cancer [Unknown]
